FAERS Safety Report 9523343 (Version 1)
Quarter: 2013Q3

REPORT INFORMATION
  Report Type: Spontaneous
  Country: US (occurrence: US)
  Receive Date: 20130913
  Receipt Date: 20130913
  Transmission Date: 20140515
  Serious: Yes (Hospitalization)
  Sender: FDA-Public Use
  Company Number: PHEH2013US019164

PATIENT
  Sex: Male

DRUGS (6)
  1. TRILEPTAL [Suspect]
     Dosage: 600 MG, TID (AT 8 AM, 2 PM, 6 PM)
  2. KLONOPIN [Concomitant]
     Dosage: 0.5 MG, BID (AT 7 AM AND 5 PM)
  3. KEPPRA [Concomitant]
     Dosage: 750MG AT 8 AM AND 1000MG AT 6 PM
  4. VIMPAT [Concomitant]
     Dosage: 100 MG, BID (AT 8 AM AND 6 PM)
  5. LANTUS [Concomitant]
     Dosage: 20 UNITS AT 6 PM
  6. HUMALOG [Concomitant]
     Dosage: BASED ON BLOOD GLUCOSE LEVELS

REACTIONS (2)
  - Convulsion [Unknown]
  - Confusional state [Unknown]
